FAERS Safety Report 8407008-X (Version None)
Quarter: 2012Q2

REPORT INFORMATION
  Report Type: 
  Country: None (occurrence: None)
  Receive Date: 20120604
  Receipt Date: 20120531
  Transmission Date: 20120825
  Serious: Yes (Other)
  Sender: FDA-Public Use
  Company Number: CA-ROCHE-800845

PATIENT
  Sex: Male
  Weight: 72 kg

DRUGS (3)
  1. ACETAMINOPHEN [Concomitant]
     Dosage: PRN
     Route: 048
  2. AVASTIN [Suspect]
     Indication: GLIOBLASTOMA
     Route: 042
  3. KEPPRA [Concomitant]
     Indication: PRODUCT USED FOR UNKNOWN INDICATION
     Dosage: 'DIE'
     Route: 048

REACTIONS (5)
  - NEOPLASM [None]
  - PLICATED TONGUE [None]
  - TUMOUR NECROSIS [None]
  - DISEASE PROGRESSION [None]
  - HEMIPARESIS [None]
